FAERS Safety Report 25906553 (Version 2)
Quarter: 2025Q4

REPORT INFORMATION
  Report Type: Report from Study
  Country: US (occurrence: US)
  Receive Date: 20251010
  Receipt Date: 20251114
  Transmission Date: 20260117
  Serious: Yes (Other)
  Sender: OTSUKA
  Company Number: US-OTSUKA-2022_026021

PATIENT
  Age: 47 Year
  Sex: Female

DRUGS (12)
  1. TOLVAPTAN [Suspect]
     Active Substance: TOLVAPTAN
     Indication: Congenital cystic kidney disease
     Dosage: 45 MG
     Route: 065
  2. TOLVAPTAN [Suspect]
     Active Substance: TOLVAPTAN
     Dosage: 15 MG
     Route: 065
  3. TOLVAPTAN [Suspect]
     Active Substance: TOLVAPTAN
     Dosage: 90 MG
     Route: 065
  4. TOLVAPTAN [Suspect]
     Active Substance: TOLVAPTAN
     Dosage: 30 MG
     Route: 065
  5. TOLVAPTAN [Suspect]
     Active Substance: TOLVAPTAN
     Dosage: 60 MG
     Route: 065
  6. TOLVAPTAN [Suspect]
     Active Substance: TOLVAPTAN
     Dosage: 30 MG
     Route: 065
  7. TOLVAPTAN [Suspect]
     Active Substance: TOLVAPTAN
     Dosage: 60 MG, QD (EVERY MORNING)
  8. TOLVAPTAN [Suspect]
     Active Substance: TOLVAPTAN
     Dosage: 30 MG, QD (8 H LATER)
  9. TOLVAPTAN [Suspect]
     Active Substance: TOLVAPTAN
     Dosage: 15 MG, QD (UPON WAKING)
  10. TOLVAPTAN [Suspect]
     Active Substance: TOLVAPTAN
     Dosage: 15 MG, QD (8 HOURS LATER)
  11. TOLVAPTAN [Suspect]
     Active Substance: TOLVAPTAN
     Dosage: 45 MG, QD
  12. TOLVAPTAN [Suspect]
     Active Substance: TOLVAPTAN
     Dosage: 15 MG, QD

REACTIONS (20)
  - Renal impairment [Not Recovered/Not Resolved]
  - Family stress [Unknown]
  - Ill-defined disorder [Unknown]
  - Chills [Unknown]
  - Migraine [Unknown]
  - Nausea [Not Recovered/Not Resolved]
  - Dyspepsia [Unknown]
  - Abdominal distension [Not Recovered/Not Resolved]
  - Fatigue [Recovering/Resolving]
  - Nocturia [Not Recovered/Not Resolved]
  - Decreased appetite [Recovering/Resolving]
  - Thirst [Recovering/Resolving]
  - Pollakiuria [Not Recovered/Not Resolved]
  - Dizziness [Not Recovered/Not Resolved]
  - Diarrhoea [Not Recovered/Not Resolved]
  - COVID-19 [Not Recovered/Not Resolved]
  - Vomiting [Not Recovered/Not Resolved]
  - Therapy change [Unknown]
  - Product dose omission issue [Unknown]
  - Insurance issue [Unknown]

NARRATIVE: CASE EVENT DATE: 20220502
